FAERS Safety Report 5553365-1 (Version None)
Quarter: 2007Q4

REPORT INFORMATION
  Report Type: 
  Country: None (occurrence: None)
  Receive Date: 20071128
  Receipt Date: 20070623
  Transmission Date: 20080405
  Serious: Yes (Other)
  Sender: FDA-Public Use
  Company Number: CIP06000153

PATIENT
  Age: 82 Year
  Sex: Male

DRUGS (5)
  1. ACTONEL [Suspect]
     Dosage: ORAL
     Route: 048
  2. THALOMID [Concomitant]
  3. PREDNISONE TAB [Concomitant]
  4. VITAMINS [Concomitant]
  5. CALCIUM WITH VITAMIN D (ERGOCALCIFEROL, CALCIUM SODIUM LACTATE, CALCIU [Concomitant]

REACTIONS (4)
  - BONE EROSION [None]
  - MASTICATION DISORDER [None]
  - OSTEONECROSIS [None]
  - PAIN IN JAW [None]
